FAERS Safety Report 4316958-5 (Version None)
Quarter: 2004Q1

REPORT INFORMATION
  Report Type: 
  Country: None (occurrence: None)
  Receive Date: 20040312
  Receipt Date: 20040224
  Transmission Date: 20041129
  Serious: Yes (Other)
  Sender: FDA-Public Use
  Company Number: S03-USA-04615-01

PATIENT
  Age: 42 Year
  Sex: Female
  Weight: 90.7194 kg

DRUGS (3)
  1. LEXAPRO [Suspect]
     Indication: DEPRESSION
     Dosage: 10 MG QD PO
     Route: 048
     Dates: start: 20030807, end: 20030925
  2. FIORICET [Concomitant]
  3. IBUPROFEN [Concomitant]

REACTIONS (14)
  - ANAEMIA [None]
  - BONE MARROW TRANSPLANT [None]
  - CHRONIC MYELOMONOCYTIC LEUKAEMIA [None]
  - FATIGUE [None]
  - HAEMORRHAGE [None]
  - MARROW HYPERPLASIA [None]
  - MYELODYSPLASTIC SYNDROME [None]
  - NAUSEA [None]
  - NIGHT SWEATS [None]
  - PETECHIAE [None]
  - PYREXIA [None]
  - STOMATITIS [None]
  - THROMBOCYTOPENIA [None]
  - TRISOMY 8 [None]
